FAERS Safety Report 4690742-5 (Version None)
Quarter: 2005Q2

REPORT INFORMATION
  Report Type: 
  Country: None (occurrence: None)
  Receive Date: 20050615
  Receipt Date: 20050603
  Transmission Date: 20051028
  Serious: Yes (Other)
  Sender: FDA-Public Use
  Company Number: JP-SANOFI-SYNTHELABO-F01200500880

PATIENT
  Sex: Male
  Weight: 40 kg

DRUGS (5)
  1. OXALIPLATIN [Suspect]
     Indication: COLON CANCER
     Route: 042
     Dates: start: 20050427, end: 20050427
  2. FLUOROURACIL [Suspect]
     Dosage: 520 MG IV BOLUS AND 3120 MG IV CONTINUOUS INFUSION ON DAY 1-2, Q2W
     Route: 042
     Dates: start: 20050427, end: 20050428
  3. CALCIUM LEVOFOLINATE [Suspect]
     Route: 042
     Dates: start: 20050427, end: 20050427
  4. ALLOPURINOL [Concomitant]
     Indication: STOMATITIS
     Dosage: 60 ML
     Route: 048
     Dates: start: 20050428
  5. FLUOROURACIL [Concomitant]
     Indication: COLON CANCER
     Dosage: UNK
     Route: 065
     Dates: end: 19991115

REACTIONS (1)
  - GASTRIC ULCER [None]
